FAERS Safety Report 24838828 (Version 1)
Quarter: 2025Q1

REPORT INFORMATION
  Report Type: Report from Study
  Country: US (occurrence: US)
  Receive Date: 20250113
  Receipt Date: 20250113
  Transmission Date: 20250409
  Serious: Yes (Hospitalization)
  Sender: JAZZ
  Company Number: US-JAZZ PHARMACEUTICALS-2024-US-025376

PATIENT
  Sex: Male

DRUGS (2)
  1. EPIDIOLEX [Suspect]
     Active Substance: CANNABIDIOL
     Indication: Epilepsy
     Dosage: 1.2 MILLIGRAM, BID
     Route: 048
     Dates: start: 202407
  2. EPIDIOLEX [Suspect]
     Active Substance: CANNABIDIOL
     Dosage: 1.2 MILLILITER, BID
     Route: 048
     Dates: start: 202407

REACTIONS (4)
  - Hospitalisation [Unknown]
  - Weight decreased [Unknown]
  - Illness [Unknown]
  - Eating disorder [Unknown]
